FAERS Safety Report 6476634-X (Version None)
Quarter: 2009Q4

REPORT INFORMATION
  Report Type: 
  Country: None (occurrence: None)
  Receive Date: 20091203
  Receipt Date: 20091203
  Transmission Date: 20100525
  Serious: No
  Sender: FDA-Public Use
  Company Number: None

PATIENT
  Sex: Female
  Weight: 61.6892 kg

DRUGS (2)
  1. LEVAQUIN [Suspect]
     Indication: BRONCHITIS
     Dosage: BY MOUTH PILL
     Route: 048
     Dates: start: 20090601
  2. LEVAQUIN [Suspect]
     Indication: PNEUMONIA
     Dosage: BY MOUTH PILL
     Route: 048
     Dates: start: 20090601

REACTIONS (1)
  - TENDONITIS [None]
